FAERS Safety Report 8584275-3 (Version None)
Quarter: 2012Q3

REPORT INFORMATION
  Report Type: 
  Country: None (occurrence: None)
  Receive Date: 20120810
  Receipt Date: 20120803
  Transmission Date: 20120928
  Serious: Yes (Hospitalization, Other)
  Sender: FDA-Public Use
  Company Number: US-BIOGENIDEC-2012BI026310

PATIENT
  Age: 64 Year
  Sex: Male

DRUGS (2)
  1. AVONEX [Suspect]
     Route: 030
  2. AVONEX [Suspect]
     Indication: MULTIPLE SCLEROSIS
     Route: 030
     Dates: start: 19961201

REACTIONS (7)
  - FAECAL INCONTINENCE [None]
  - OSTEOMYELITIS [None]
  - IMPAIRED HEALING [None]
  - MUSCULAR WEAKNESS [None]
  - CONSTIPATION [None]
  - HYPOAESTHESIA [None]
  - INFECTED SKIN ULCER [None]
